FAERS Safety Report 7590315-0 (Version None)
Quarter: 2011Q2

REPORT INFORMATION
  Report Type: 
  Country: None (occurrence: None)
  Receive Date: 20110627
  Receipt Date: 20110613
  Transmission Date: 20111010
  Serious: Yes (Disabling, Other)
  Sender: FDA-Public Use
  Company Number: 1000021742

PATIENT
  Age: 57 Year
  Sex: Female

DRUGS (5)
  1. ADVAIR (FLUTICASONE, SALMETROL) (FLUTICASONE, SALMETEROL) [Concomitant]
  2. ROFLUMILAST (ROFLUMILAST) (TABLET) [Suspect]
     Dosage: 500 MCG (500 MCG, 1 IN 1 D), ORAL
     Route: 048
  3. FLOVENT (FLUTICASONE PROPIONATE) (FLUTICASONE PROPIONATE) [Concomitant]
  4. SPIRIVA (TIOTROPIUM BROMIDE) (TIOTROPIUM BROMIDE) [Concomitant]
  5. ALVESCO (CICLESONIDE) (CICLESONIDE) [Concomitant]

REACTIONS (4)
  - DIARRHOEA [None]
  - ABDOMINAL DISCOMFORT [None]
  - URTICARIA [None]
  - HEADACHE [None]
